FAERS Safety Report 8701956 (Version 2)
Quarter: 2012Q4

REPORT INFORMATION
  Report Type: 
  Country: JP (occurrence: JP)
  Receive Date: 20120803
  Receipt Date: 20120907
  Transmission Date: 20130627
  Serious: Yes (Other)
  Sender: FDA-Public Use
  Company Number: JP-009507513-1207JPN012592

PATIENT

DRUGS (11)
  1. STROMECTOL [Suspect]
     Dosage: 9 mg, Once
     Route: 048
     Dates: start: 20120601, end: 20120601
  2. STROMECTOL [Suspect]
     Dosage: 9 mg, Once
     Route: 048
     Dates: start: 20120611, end: 20120611
  3. BASSAMIN [Concomitant]
     Dosage: 81 mg, qd
     Route: 048
  4. LERITE [Concomitant]
     Dosage: 2.5 mg, qd
     Route: 048
  5. FUROSEMIDE [Concomitant]
     Dosage: 20 mg frequency unknown
     Route: 048
  6. ASPARA K [Concomitant]
     Dosage: 300 mg frequency unknown
     Route: 048
  7. HALTHROW [Concomitant]
     Dosage: 0.2 mg frequency unknown
  8. URIEF [Concomitant]
     Dosage: 8 mg frequency unknown
     Route: 048
  9. NIKORANMART [Concomitant]
     Dosage: 15 mg frequency unknown
  10. APATYA [Concomitant]
     Dosage: 1 DF frequency unknown
     Route: 062
  11. EURAX [Concomitant]
     Dosage: UNK
     Route: 061
     Dates: start: 20120601

REACTIONS (3)
  - Eosinophilia [Recovered/Resolved]
  - Eyelid oedema [None]
  - Oedema peripheral [None]
